FAERS Safety Report 8791322 (Version 2)
Quarter: 2012Q4

REPORT INFORMATION
  Report Type: Spontaneous
  Country: US (occurrence: None)
  Receive Date: 20120911
  Receipt Date: 20121009
  Transmission Date: 20130627
  Serious: Yes (Death, Life-Threatening, Hospitalization)
  Sender: FDA-Public Use
  Company Number: NES-AE-12-010

PATIENT
  Age: 67 Year
  Sex: Female
  Weight: 89 kg

DRUGS (16)
  1. POTASSIUM CHLORIDE [Suspect]
     Route: 048
     Dates: end: 20111105
  2. CRIZOTINIB [Suspect]
     Route: 048
     Dates: start: 20110603, end: 20111024
  3. LEVOTHYROXINE [Suspect]
     Route: 048
     Dates: end: 20111105
  4. BENZONATATE [Suspect]
     Route: 048
     Dates: end: 20111105
  5. VANCOMYCIN [Suspect]
     Route: 042
     Dates: start: 20111015, end: 20111016
  6. VANCOMYCIN [Suspect]
  7. ASPIRIN [Suspect]
     Route: 048
     Dates: end: 20111105
  8. ZETIA [Suspect]
     Route: 048
     Dates: end: 20111105
  9. SIMVASTATIN [Suspect]
     Route: 048
     Dates: end: 20111105
  10. COREG [Suspect]
     Route: 048
     Dates: end: 20111010
  11. FUROSEMIDE [Suspect]
     Route: 048
     Dates: end: 20111105
  12. FLUZONE [Suspect]
     Dosage: 1DF-single-Subcutaneous
     Route: 058
     Dates: start: 20111005, end: 20111005
  13. LEVOFLOXACIN [Suspect]
     Dosage: 750mg/d5w 150ml-q24hr-iv
     Route: 042
     Dates: start: 20111015, end: 20111018
  14. LEVOFLOXACIN [Suspect]
     Dosage: 750mg/d5w 150ml-q24hr-iv
  15. MEROPENEM [Suspect]
     Dosage: 1g in 50ml NS-Q8h-iv
     Route: 042
     Dates: start: 20111015, end: 20111019
  16. MEROPENEM [Suspect]
     Dosage: 1g in 50ml NS-Q8h-iv

REACTIONS (13)
  - Dizziness postural [None]
  - Orthostatic hypotension [None]
  - Ataxia [None]
  - Diastolic dysfunction [None]
  - Ileus [None]
  - Atelectasis [None]
  - Mitral valve incompetence [None]
  - Syncope [None]
  - Fall [None]
  - Pleural effusion [None]
  - Abdominal pain [None]
  - Nausea [None]
  - Pancreatic pseudocyst [None]
